FAERS Safety Report 23014743 (Version 3)
Quarter: 2023Q4

REPORT INFORMATION
  Report Type: Spontaneous
  Country: US (occurrence: US)
  Receive Date: 20231002
  Receipt Date: 20231211
  Transmission Date: 20240109
  Serious: Yes (Hospitalization, Other)
  Sender: FDA-Public Use
  Company Number: US-PHARMING-PHAUS2023000718

PATIENT

DRUGS (4)
  1. RUCONEST [Suspect]
     Active Substance: HUMAN C1-ESTERASE INHIBITOR
     Indication: Hereditary angioedema
     Dosage: 2800 IU, TWICE WEEKLY
     Route: 042
     Dates: start: 201908
  2. RUCONEST [Suspect]
     Active Substance: HUMAN C1-ESTERASE INHIBITOR
     Dosage: 2800 IU, TWICE WEEKLY
     Route: 042
     Dates: start: 20190821
  3. RUCONEST [Suspect]
     Active Substance: HUMAN C1-ESTERASE INHIBITOR
     Dosage: 2250 IU, TWICE WEEKLY
     Route: 042
     Dates: start: 20190822
  4. FIRAZYR [Concomitant]
     Active Substance: ICATIBANT ACETATE
     Indication: Product used for unknown indication

REACTIONS (7)
  - Rhinovirus infection [Unknown]
  - Brain oedema [Unknown]
  - Asthenia [Unknown]
  - Weight decreased [Unknown]
  - Intentional product use issue [Unknown]
  - Viral infection [Unknown]
  - Nausea [Unknown]
